FAERS Safety Report 6485544-3 (Version None)
Quarter: 2009Q4

REPORT INFORMATION
  Report Type: 
  Country: None (occurrence: None)
  Receive Date: 20091209
  Receipt Date: 20090630
  Transmission Date: 20100525
  Serious: No
  Sender: FDA-Public Use
  Company Number: US-AMGEN-KDL353925

PATIENT
  Sex: Female

DRUGS (2)
  1. ENBREL [Suspect]
     Indication: PSORIASIS
     Route: 058
     Dates: start: 20041101
  2. MOBIC [Concomitant]

REACTIONS (4)
  - ARTHRALGIA [None]
  - CONTUSION [None]
  - FALL [None]
  - INJECTION SITE PAIN [None]
